FAERS Safety Report 11001983 (Version 3)
Quarter: 2015Q2

REPORT INFORMATION
  Report Type: Spontaneous
  Country: DE (occurrence: DE)
  Receive Date: 20150408
  Receipt Date: 20150515
  Transmission Date: 20150821
  Serious: Yes (Other)
  Sender: FDA-Public Use
  Company Number: DE-ABBVIE-15P-062-1372113-00

PATIENT
  Age: 78 Year
  Sex: Female

DRUGS (1)
  1. EPROSARTAN COMP.600/12.5 MG [Suspect]
     Active Substance: EPROSARTAN\HYDROCHLOROTHIAZIDE
     Indication: PRODUCT USED FOR UNKNOWN INDICATION
     Dosage: 1 DOSAGE FORM CONTAINS (STRENGTH) 600MG EPROSARTAN AND 12.5MG HYDROCHLOROTHIAZIDE
     Route: 048
     Dates: start: 2011

REACTIONS (5)
  - Microcytic anaemia [Not Recovered/Not Resolved]
  - Hypotension [Unknown]
  - Blood count abnormal [Unknown]
  - Red blood cell sedimentation rate abnormal [Unknown]
  - Haemolytic anaemia [Not Recovered/Not Resolved]

NARRATIVE: CASE EVENT DATE: 2015
